FAERS Safety Report 7465497-1 (Version None)
Quarter: 2011Q2

REPORT INFORMATION
  Report Type: 
  Country: None (occurrence: None)
  Receive Date: 20110509
  Receipt Date: 20110429
  Transmission Date: 20111010
  Serious: Yes (Hospitalization)
  Sender: FDA-Public Use
  Company Number: IT-ROCHE-772136

PATIENT
  Sex: Female

DRUGS (1)
  1. AVASTIN [Suspect]
     Indication: BREAST CANCER
     Dosage: FREQUENCY: CYCLIC
     Route: 042
     Dates: start: 20101103, end: 20110404

REACTIONS (5)
  - ASCITES [None]
  - INTESTINAL INFARCTION [None]
  - JAUNDICE [None]
  - VOMITING [None]
  - VENOUS THROMBOSIS [None]
